FAERS Safety Report 23126472 (Version 1)
Quarter: 2023Q4

REPORT INFORMATION
  Report Type: Spontaneous
  Country: CA (occurrence: CA)
  Receive Date: 20231030
  Receipt Date: 20231030
  Transmission Date: 20240110
  Serious: Yes (Life-Threatening)
  Sender: FDA-Public Use
  Company Number: CA-PFIZER INC-202300349216

PATIENT
  Age: 39 Year
  Sex: Female

DRUGS (1)
  1. DESVENLAFAXINE [Suspect]
     Active Substance: DESVENLAFAXINE
     Indication: Anxiety
     Dosage: 100 MG, 1X/DAY
     Route: 048

REACTIONS (7)
  - Anxiety [Unknown]
  - Constipation [Unknown]
  - Migraine [Unknown]
  - Product substitution issue [Unknown]
  - Sleep disorder [Unknown]
  - Suicidal ideation [Unknown]
  - Vomiting [Unknown]
